FAERS Safety Report 11227202 (Version 1)
Quarter: 2015Q2

REPORT INFORMATION
  Report Type: Report from Study
  Country: US (occurrence: US)
  Receive Date: 20150630
  Receipt Date: 20150630
  Transmission Date: 20150821
  Serious: Yes (Hospitalization)
  Sender: FDA-Public Use
  Company Number: PHEH2015US011747

PATIENT
  Sex: Female

DRUGS (2)
  1. TOBI [Suspect]
     Active Substance: TOBRAMYCIN
     Indication: PRODUCT USED FOR UNKNOWN INDICATION
     Route: 042
  2. TOBI PODHALER [Suspect]
     Active Substance: TOBRAMYCIN
     Indication: CYSTIC FIBROSIS
     Dosage: 4 DF, BID (28 DAYS ON AND 28 DAYS OFF)
     Route: 055
     Dates: start: 20140509

REACTIONS (3)
  - Sinus headache [Recovering/Resolving]
  - Sinus polyp [Recovering/Resolving]
  - Renal impairment [Unknown]
